FAERS Safety Report 16975903 (Version 1)
Quarter: 2019Q4

REPORT INFORMATION
  Report Type: Spontaneous
  Country: US (occurrence: US)
  Receive Date: 20191030
  Receipt Date: 20191030
  Transmission Date: 20200122
  Serious: Yes (Hospitalization)
  Sender: FDA-Public Use
  Company Number: US-PERRIGO-19US012759

PATIENT
  Age: 13 Month
  Sex: Male

DRUGS (2)
  1. ACETAMINOPHEN. [Suspect]
     Active Substance: ACETAMINOPHEN
     Dosage: 10 TO 15 MG/KG, TWO DOSES ON HOSPITAL DAY 1
     Route: 048
  2. ACETAMINOPHEN. [Suspect]
     Active Substance: ACETAMINOPHEN
     Indication: PYREXIA
     Dosage: 10 TO 15 MG/KG, 3 DOSES OVER 3 DAYS
     Route: 048

REACTIONS (4)
  - Splenomegaly [Recovered/Resolved]
  - Hepatic failure [Recovering/Resolving]
  - Focal nodular hyperplasia [Not Recovered/Not Resolved]
  - Toxicity to various agents [Recovering/Resolving]
